FAERS Safety Report 9801842 (Version 2)
Quarter: 2014Q1

REPORT INFORMATION
  Report Type: Spontaneous
  Country: US (occurrence: US)
  Receive Date: 20140107
  Receipt Date: 20140213
  Transmission Date: 20141002
  Serious: No
  Sender: FDA-Public Use
  Company Number: US-PFIZER INC-2014002275

PATIENT
  Age: 84 Year
  Sex: Female
  Weight: 77.1 kg

DRUGS (4)
  1. ADVIL [Suspect]
     Indication: ARTHRALGIA
     Dosage: UNK, AS NEEDED
     Route: 048
     Dates: start: 20131231, end: 20140102
  2. LISINOPRIL [Concomitant]
     Indication: HYPERTENSION
     Dosage: 20 MG, DAILY
     Route: 048
  3. VERAPAMIL [Concomitant]
     Indication: HYPERTENSION
     Dosage: 120 MG, DAILY
     Route: 048
  4. LOVASTATIN [Concomitant]
     Dosage: 20 MG, DAILY

REACTIONS (3)
  - Expired drug administered [Unknown]
  - Lip swelling [Not Recovered/Not Resolved]
  - Throat tightness [Not Recovered/Not Resolved]
